FAERS Safety Report 20549364 (Version 1)
Quarter: 2022Q1

REPORT INFORMATION
  Report Type: Spontaneous
  Country: US (occurrence: US)
  Receive Date: 20220303
  Receipt Date: 20220303
  Transmission Date: 20220424
  Serious: No
  Sender: FDA-Public Use
  Company Number: US-ALLERGAN-2136788US

PATIENT
  Sex: Female

DRUGS (2)
  1. RESTASIS [Suspect]
     Active Substance: CYCLOSPORINE
     Indication: Sjogren^s syndrome
     Dosage: 2 GTT, BID
     Route: 047
  2. RESTASIS [Suspect]
     Active Substance: CYCLOSPORINE
     Indication: Dry eye

REACTIONS (13)
  - Corneal infection [Unknown]
  - Corneal abrasion [Unknown]
  - Multiple use of single-use product [Unknown]
  - Product storage error [Unknown]
  - Expired product administered [Unknown]
  - Insurance issue [Unknown]
  - Therapy interrupted [Unknown]
  - Photophobia [Unknown]
  - Ulcerative keratitis [Unknown]
  - Headache [Unknown]
  - Eye discharge [Unknown]
  - Foreign body sensation in eyes [Unknown]
  - Eye pain [Unknown]

NARRATIVE: CASE EVENT DATE: 20190101
